FAERS Safety Report 4525815-0 (Version None)
Quarter: 2004Q4

REPORT INFORMATION
  Report Type: 
  Country: None (occurrence: None)
  Receive Date: 20041116
  Receipt Date: 20040914
  Transmission Date: 20050328
  Serious: No
  Sender: FDA-Public Use
  Company Number: S04-USA-06335-01

PATIENT

DRUGS (3)
  1. NAMENDA [Suspect]
  2. ARICEPT [Concomitant]
  3. CELEBREX [Concomitant]

REACTIONS (1)
  - RENIN INCREASED [None]
